FAERS Safety Report 4997040-0 (Version None)
Quarter: 2006Q2

REPORT INFORMATION
  Report Type: 
  Country: None (occurrence: None)
  Receive Date: 20060505
  Receipt Date: 20060426
  Transmission Date: 20061013
  Serious: Yes (Hospitalization)
  Sender: FDA-Public Use
  Company Number: 2006BI004038

PATIENT
  Age: 53 Year
  Sex: Female

DRUGS (7)
  1. AVONEX [Suspect]
     Indication: MULTIPLE SCLEROSIS
     Dosage: 30 UG; QW; IM
     Route: 030
  2. AVONEX [Suspect]
     Indication: MULTIPLE SCLEROSIS
     Dosage: IM
     Route: 030
  3. FOSAMAX [Concomitant]
  4. SYNTHROID [Concomitant]
  5. PROVIGIL [Concomitant]
  6. GABITRIL [Concomitant]
  7. LITHIUM CARBONATE [Concomitant]

REACTIONS (1)
  - HIP ARTHROPLASTY [None]
